FAERS Safety Report 7728903-0 (Version None)
Quarter: 2011Q3

REPORT INFORMATION
  Report Type: 
  Country: None (occurrence: None)
  Receive Date: 20110831
  Receipt Date: 20110831
  Transmission Date: 20111222
  Serious: Yes (Hospitalization)
  Sender: FDA-Public Use
  Company Number: None

PATIENT
  Age: 63 Year
  Sex: Male
  Weight: 96.4 kg

DRUGS (1)
  1. CLOPIDOGREL [Suspect]
     Dosage: 75 MG EVERY DAY PO
     Route: 048
     Dates: start: 20110316, end: 20110408

REACTIONS (5)
  - RASH [None]
  - SWOLLEN TONGUE [None]
  - ERYTHEMA [None]
  - ANGIOEDEMA [None]
  - LIP SWELLING [None]
